FAERS Safety Report 16728431 (Version 1)
Quarter: 2019Q3

REPORT INFORMATION
  Report Type: Spontaneous
  Country: FR (occurrence: FR)
  Receive Date: 20190822
  Receipt Date: 20190822
  Transmission Date: 20191005
  Serious: Yes (Other)
  Sender: FDA-Public Use
  Company Number: FR-ACCORD-152452

PATIENT
  Age: 48 Year
  Sex: Male
  Weight: 72.8 kg

DRUGS (6)
  1. POLARAMINE [Suspect]
     Active Substance: DEXCHLORPHENIRAMINE MALEATE
     Indication: PREMEDICATION
     Dosage: STRENGTH 5 MG / 1 ML
     Route: 041
     Dates: start: 20190723, end: 20190723
  2. HYDROCORTISONE UPJOHN [Suspect]
     Active Substance: HYDROCORTISONE
     Indication: PREMEDICATION
     Dosage: STRENGTH 100 MG,INJECTABLE PREPARATION
     Route: 041
     Dates: start: 20190723, end: 20190723
  3. ARACYTIN [Suspect]
     Active Substance: CYTARABINE
     Indication: LYMPHOMA
     Dosage: STRENGTH 1G, LYOPHILIZATE FOR PARENTERAL USE (I.V.)
     Route: 041
     Dates: start: 20190723, end: 20190723
  4. TRUXIMA [Suspect]
     Active Substance: RITUXIMAB-ABBS
     Indication: LYMPHOMA
     Dosage: STRENGTH 500 MG
     Route: 041
     Dates: start: 20190723, end: 20190723
  5. OXALIPLATIN. [Suspect]
     Active Substance: OXALIPLATIN
     Indication: LYMPHOMA
     Route: 041
     Dates: start: 20190723, end: 20190723
  6. ONDANSETRON ACCORD [Suspect]
     Active Substance: ONDANSETRON
     Indication: PREMEDICATION
     Dosage: STRENGTH 2 MG/ML
     Route: 041
     Dates: start: 20190723, end: 20190723

REACTIONS (2)
  - Off label use [Unknown]
  - Generalised erythema [Recovering/Resolving]

NARRATIVE: CASE EVENT DATE: 20190723
